FAERS Safety Report 6273217-1 (Version None)
Quarter: 2009Q3

REPORT INFORMATION
  Report Type: 
  Country: None (occurrence: None)
  Receive Date: 20090720
  Receipt Date: 20090717
  Transmission Date: 20100115
  Serious: Yes (Hospitalization, Other)
  Sender: FDA-Public Use
  Company Number: US-AMGEN-KDL346427

PATIENT
  Sex: Male

DRUGS (23)
  1. ARANESP [Suspect]
     Indication: DIALYSIS
     Route: 058
  2. EPOGEN [Suspect]
     Indication: DIALYSIS
     Route: 058
     Dates: start: 20080716
  3. SENSIPAR [Concomitant]
     Indication: HYPERPARATHYROIDISM SECONDARY
  4. COZAAR [Concomitant]
  5. LABETALOL HCL [Concomitant]
     Route: 048
  6. RENAL SOFT GEL [Concomitant]
  7. ALBUTEROL [Concomitant]
  8. ASCORBIC ACID [Concomitant]
  9. MEGACE [Concomitant]
  10. CALCITRIOL [Concomitant]
     Route: 048
  11. TRAZODONE [Concomitant]
  12. NEPHRON FA [Concomitant]
     Route: 048
  13. PHOSLO [Concomitant]
     Route: 048
  14. CLONIDINE [Concomitant]
     Route: 048
  15. AMBIEN [Concomitant]
     Route: 048
  16. NORVASC [Concomitant]
     Route: 048
  17. LASIX [Concomitant]
     Route: 048
  18. HYDRALAZINE HCL [Concomitant]
     Dates: start: 20090205
  19. CALCIUM ACETATE [Concomitant]
     Route: 048
     Dates: start: 20090206
  20. ZOLPIDEM [Concomitant]
     Route: 048
     Dates: start: 20090209
  21. MULTI-VITAMINS [Concomitant]
  22. MULTI-VITAMINS [Concomitant]
  23. FERROUS SULFATE TAB [Concomitant]

REACTIONS (12)
  - ASTHMA [None]
  - ATELECTASIS [None]
  - AUTOIMMUNE DISORDER [None]
  - CHEST PAIN [None]
  - DRUG INEFFECTIVE [None]
  - FLUID OVERLOAD [None]
  - HYPERTENSION [None]
  - HYPERTENSIVE CRISIS [None]
  - NORMOCHROMIC NORMOCYTIC ANAEMIA [None]
  - PLEURAL EFFUSION [None]
  - PNEUMONIA [None]
  - PULMONARY OEDEMA [None]
